FAERS Safety Report 8927584 (Version 2)
Quarter: 2013Q1

REPORT INFORMATION
  Report Type: Spontaneous
  Country: US (occurrence: US)
  Receive Date: 20121127
  Receipt Date: 20130128
  Transmission Date: 20140127
  Serious: Yes (Other)
  Sender: FDA-Public Use
  Company Number: US-BAYER-2012-122248

PATIENT
  Age: 41 Year
  Sex: Female

DRUGS (1)
  1. BETASERON [Suspect]
     Indication: MULTIPLE SCLEROSIS
     Dosage: 0.3 MG, QOD
     Route: 058

REACTIONS (8)
  - Memory impairment [Unknown]
  - Myalgia [Unknown]
  - Injection site pain [Unknown]
  - Injection site swelling [Unknown]
  - Injection site bruising [Unknown]
  - Injection site bruising [Unknown]
  - Myalgia [Unknown]
  - Injection site erythema [Unknown]
